FAERS Safety Report 19024219 (Version 2)
Quarter: 2021Q1

REPORT INFORMATION
  Report Type: Spontaneous
  Country: US (occurrence: US)
  Receive Date: 20210317
  Receipt Date: 20210325
  Transmission Date: 20210420
  Serious: No
  Sender: FDA-Public Use
  Company Number: US-AMGEN-USASP2021040811

PATIENT
  Age: 66 Year
  Sex: Female

DRUGS (2)
  1. MVASI [Suspect]
     Active Substance: BEVACIZUMAB-AWWB
     Dosage: 700 MILLIGRAM
     Route: 065
     Dates: start: 20210210
  2. MVASI [Suspect]
     Active Substance: BEVACIZUMAB-AWWB
     Indication: GLIOSARCOMA
     Dosage: UNK
     Route: 065
     Dates: start: 20201203

REACTIONS (1)
  - Wound [Recovering/Resolving]

NARRATIVE: CASE EVENT DATE: 202102
